FAERS Safety Report 6007080-0 (Version None)
Quarter: 2008Q4

REPORT INFORMATION
  Report Type: 
  Country: None (occurrence: None)
  Receive Date: 20081217
  Receipt Date: 20080108
  Transmission Date: 20090506
  Serious: No
  Sender: FDA-Public Use
  Company Number: US-ASTRAZENECA-2008UW00512

PATIENT
  Age: 60 Year
  Sex: Female
  Weight: 104.3 kg

DRUGS (2)
  1. CRESTOR [Suspect]
     Indication: BLOOD CHOLESTEROL
  2. HYZAAR [Concomitant]

REACTIONS (2)
  - HYPOAESTHESIA ORAL [None]
  - MUSCULAR WEAKNESS [None]
